FAERS Safety Report 13562202 (Version 1)
Quarter: 2017Q2

REPORT INFORMATION
  Report Type: Spontaneous
  Country: DK (occurrence: DK)
  Receive Date: 20170519
  Receipt Date: 20170519
  Transmission Date: 20170830
  Serious: Yes (Death, Other)
  Sender: FDA-Public Use
  Company Number: DK-IPCA LABORATORIES LIMITED-IPC-2017-DK-000439

PATIENT
  Age: 84 Year
  Sex: Male
  Weight: 98 kg

DRUGS (9)
  1. MIRTAZAPINE. [Suspect]
     Active Substance: MIRTAZAPINE
     Indication: PRODUCT USED FOR UNKNOWN INDICATION
  2. IVABRADINE [Suspect]
     Active Substance: IVABRADINE
     Indication: PRODUCT USED FOR UNKNOWN INDICATION
  3. TRANDOLAPRILE [Suspect]
     Active Substance: TRANDOLAPRIL
     Indication: PRODUCT USED FOR UNKNOWN INDICATION
  4. ACETYLSALICYLIC ACID [Suspect]
     Active Substance: ASPIRIN
     Indication: PRODUCT USED FOR UNKNOWN INDICATION
  5. OXAZEPAM. [Suspect]
     Active Substance: OXAZEPAM
     Indication: PRODUCT USED FOR UNKNOWN INDICATION
  6. PARACETAMOL [Suspect]
     Active Substance: ACETAMINOPHEN
     Indication: PRODUCT USED FOR UNKNOWN INDICATION
  7. NIFEDIPINE. [Suspect]
     Active Substance: NIFEDIPINE
     Indication: PRODUCT USED FOR UNKNOWN INDICATION
  8. METOPROLOL. [Suspect]
     Active Substance: METOPROLOL
     Indication: PRODUCT USED FOR UNKNOWN INDICATION
  9. SIMVASTATIN. [Suspect]
     Active Substance: SIMVASTATIN
     Indication: PRODUCT USED FOR UNKNOWN INDICATION

REACTIONS (16)
  - Completed suicide [None]
  - Overdose [Fatal]
  - Loss of consciousness [None]
  - Oesophageal haemorrhage [None]
  - Respiratory disorder [None]
  - Lung infiltration [None]
  - Bezoar [Fatal]
  - Intentional overdose [None]
  - Cardiovascular disorder [None]
  - Pneumonia aspiration [None]
  - Oesophageal obstruction [Fatal]
  - Hypotension [None]
  - Heart rate decreased [None]
  - Oxygen saturation decreased [None]
  - Body temperature increased [None]
  - Mental status changes [None]
